FAERS Safety Report 9478180 (Version 1)
Quarter: 2013Q3

REPORT INFORMATION
  Report Type: Spontaneous
  Country: US (occurrence: US)
  Receive Date: 20130827
  Receipt Date: 20130827
  Transmission Date: 20140515
  Serious: Yes (Hospitalization, Other)
  Sender: FDA-Public Use
  Company Number: US-PFIZER INC-2013242960

PATIENT
  Age: 74 Year
  Sex: Male
  Weight: 80.73 kg

DRUGS (2)
  1. SUTENT [Suspect]
     Indication: RENAL CELL CARCINOMA
     Dosage: 50 MG, 1X/DAY (FOR TWO WEEKS AND ONE WEEK OF WASH OUT PHASE)
     Route: 048
     Dates: start: 201205
  2. ICAPS [Concomitant]
     Dosage: UNK

REACTIONS (10)
  - Spinal compression fracture [Unknown]
  - Pulmonary thrombosis [Unknown]
  - Spinal disorder [Unknown]
  - Dyspnoea [Unknown]
  - Spinal disorder [Recovered/Resolved]
  - Haemorrhage [Unknown]
  - Oesophageal mass [Recovered/Resolved]
  - Back pain [Unknown]
  - Weight decreased [Unknown]
  - Inappropriate schedule of drug administration [Unknown]
